FAERS Safety Report 6408880-5 (Version None)
Quarter: 2009Q4

REPORT INFORMATION
  Report Type: 
  Country: None (occurrence: None)
  Receive Date: 20091009
  Receipt Date: 20090924
  Transmission Date: 20100525
  Serious: Yes (Death, Life-Threatening, Hospitalization)
  Sender: FDA-Public Use
  Company Number: US-JNJFOC-20090609185

PATIENT
  Age: 64 Year
  Sex: Female
  Weight: 65 kg

DRUGS (1)
  1. DACOGEN [Suspect]
     Indication: REFRACTORY ANAEMIA
     Dosage: INTRAVENOUS : 20 MG/M2, INTRAVENOUS
     Route: 042
     Dates: start: 20090605, end: 20090612

REACTIONS (7)
  - BONE MARROW FAILURE [None]
  - CEREBRAL HAEMORRHAGE [None]
  - CEREBRAL INFARCTION [None]
  - INTESTINAL INFARCTION [None]
  - RENAL INFARCT [None]
  - SPLENIC INFARCTION [None]
  - THROMBOTIC THROMBOCYTOPENIC PURPURA [None]
